FAERS Safety Report 17544506 (Version 3)
Quarter: 2020Q3

REPORT INFORMATION
  Report Type: Spontaneous
  Country: FR (occurrence: FR)
  Receive Date: 20200316
  Receipt Date: 20200707
  Transmission Date: 20201102
  Serious: Yes (Hospitalization, Other)
  Sender: FDA-Public Use
  Company Number: NVSC2020FR071066

PATIENT
  Age: 86 Year
  Sex: Male
  Weight: 77 kg

DRUGS (17)
  1. COUMADIN [Concomitant]
     Active Substance: WARFARIN SODIUM
     Dosage: 1 DF, QD
     Route: 048
     Dates: start: 201911
  2. ALFUZOSIN [Concomitant]
     Active Substance: ALFUZOSIN
     Dosage: 1 DF, QD
     Route: 048
     Dates: start: 201911
  3. BISOPROLOL [Suspect]
     Active Substance: BISOPROLOL
     Indication: ATRIAL FIBRILLATION
     Dosage: 5 MG, BID (EVERY 12 HOURS)
     Route: 002
     Dates: start: 20191113
  4. TAFAMIDIS [Suspect]
     Active Substance: TAFAMIDIS MEGLUMINE
     Indication: CARDIAC AMYLOIDOSIS
     Dosage: 61 MG, QD
     Route: 048
     Dates: start: 20191017
  5. BISOPROLOL [Suspect]
     Active Substance: BISOPROLOL
     Dosage: 1.25 MG, QD
     Route: 002
     Dates: start: 20130211, end: 20191031
  6. TAFAMIDIS [Suspect]
     Active Substance: TAFAMIDIS MEGLUMINE
     Indication: CARDIOMYOPATHY
  7. ALFUZOSIN [Concomitant]
     Active Substance: ALFUZOSIN
     Indication: PROSTATIC ADENOMA
     Dosage: UNK
     Route: 048
     Dates: start: 20190822, end: 201911
  8. LASILIX [Suspect]
     Active Substance: FUROSEMIDE
     Dosage: 80 MG, QD
     Route: 002
     Dates: start: 20191013
  9. ALLOPURINOL. [Concomitant]
     Active Substance: ALLOPURINOL
     Indication: GOUT
     Dosage: UNK
     Route: 065
     Dates: start: 20150127
  10. LASILIX [Suspect]
     Active Substance: FUROSEMIDE
     Dosage: 2 DF, QD
     Route: 002
     Dates: start: 201911, end: 201911
  11. LASILIX [Suspect]
     Active Substance: FUROSEMIDE
     Dosage: DOSE INCREASED: 500 MG 1/2 PILL/DAY, 40 MG 1 PILL/DAY (IN CASE OF WEIGHT INCREASE, OR LOWER LIMB OED
     Route: 002
     Dates: start: 201911
  12. TAFAMIDIS MEGLUMINE [Concomitant]
     Active Substance: TAFAMIDIS MEGLUMINE
     Indication: PRODUCT USED FOR UNKNOWN INDICATION
     Dosage: UNK
     Route: 065
  13. LASILIX [Suspect]
     Active Substance: FUROSEMIDE
     Indication: CARDIAC FAILURE
     Dosage: 250 MG, QD
     Route: 002
     Dates: start: 20191013
  14. LASILIX [Suspect]
     Active Substance: FUROSEMIDE
     Dosage: 250 MG, QD
     Route: 002
     Dates: start: 20140130, end: 20191031
  15. LASILIX [Suspect]
     Active Substance: FUROSEMIDE
     Dosage: 80 MG, QD  (DOSE DECREASED)
     Route: 002
     Dates: start: 20191113, end: 201911
  16. COUMADIN [Concomitant]
     Active Substance: WARFARIN SODIUM
     Indication: ATRIAL FIBRILLATION
     Dosage: UNK UNK, UNK
     Route: 065
     Dates: start: 20130211, end: 201911
  17. CETIRIZINE [Concomitant]
     Active Substance: CETIRIZINE HYDROCHLORIDE
     Indication: PRURITUS
     Dosage: UNK
     Route: 065
     Dates: start: 20190822

REACTIONS (4)
  - Rales [Recovered/Resolved]
  - Cardiac failure [Recovered/Resolved]
  - Dyspnoea [Recovered/Resolved]
  - Tachycardia [Recovered/Resolved]

NARRATIVE: CASE EVENT DATE: 20191116
